FAERS Safety Report 21052048 (Version 2)
Quarter: 2022Q3

REPORT INFORMATION
  Report Type: Spontaneous
  Country: US (occurrence: US)
  Receive Date: 20220707
  Receipt Date: 20220726
  Transmission Date: 20221026
  Serious: Yes (Other)
  Sender: FDA-Public Use
  Company Number: US-TAKEDA-2022TUS043716

PATIENT
  Age: 46 Year
  Sex: Female
  Weight: 47.5 kg

DRUGS (2)
  1. MARIBAVIR [Suspect]
     Active Substance: MARIBAVIR
     Indication: Cytomegalovirus infection
     Dosage: 400 MILLIGRAM, BID
     Route: 048
     Dates: start: 20220524, end: 20220609
  2. MARIBAVIR [Suspect]
     Active Substance: MARIBAVIR
     Indication: Drug resistance

REACTIONS (4)
  - Graft versus host disease [Unknown]
  - Cytomegalovirus viraemia [Unknown]
  - Colitis [Unknown]
  - Diarrhoea [Recovered/Resolved]

NARRATIVE: CASE EVENT DATE: 20220525
